FAERS Safety Report 9309875 (Version 3)
Quarter: 2013Q4

REPORT INFORMATION
  Report Type: Report from Study
  Country: GB (occurrence: GB)
  Receive Date: 20130526
  Receipt Date: 20131101
  Transmission Date: 20140711
  Serious: Yes (Other)
  Sender: FDA-Public Use
  Company Number: GB-US-EMD SERONO, INC.-7211957

PATIENT
  Age: 52 Year
  Sex: Female

DRUGS (12)
  1. REBIF [Suspect]
     Indication: MULTIPLE SCLEROSIS
     Route: 058
     Dates: start: 20120427
  2. DESMOPRESSIN ACETATE [Concomitant]
     Indication: INCONTINENCE
     Dosage: LAST TAKEN ON 21 MAY 2013
     Route: 048
     Dates: start: 20130227
  3. FESOTERODINE [Concomitant]
     Indication: INCONTINENCE
     Dosage: LAST TAKEN ON 21 MAY 2013
     Route: 048
     Dates: start: 20110427
  4. LEVOTHYROXINE [Concomitant]
     Indication: HYPOTHYROIDISM
     Dosage: LAST TAKEN ON 21 MAY 2013
     Route: 048
     Dates: start: 20110602
  5. PREGABALIN [Concomitant]
     Indication: PRODUCT USED FOR UNKNOWN INDICATION
     Route: 048
     Dates: start: 201209
  6. VENLAFAXINE [Concomitant]
     Indication: PRODUCT USED FOR UNKNOWN INDICATION
     Dosage: MODIFIED RELEASE CAPSULE, LAST TAKEN ON 21 MAY 2013
     Route: 048
     Dates: start: 20120726
  7. PARACETAMOL [Concomitant]
     Indication: PRODUCT USED FOR UNKNOWN INDICATION
     Route: 048
     Dates: start: 20090926
  8. PANTOPRAZOLE [Concomitant]
     Indication: PRODUCT USED FOR UNKNOWN INDICATION
     Dosage: ENTERIC COATED TABLETS; LAST TAKEN ON 21 MAY 2013
     Route: 048
     Dates: start: 20050309
  9. BACLOFEN [Concomitant]
     Indication: MUSCLE SPASMS
     Dates: start: 20111229
  10. CALCIUM CARBONATE W/COLECALCIFEROL [Concomitant]
     Indication: PRODUCT USED FOR UNKNOWN INDICATION
     Dates: start: 2008
  11. FERROUS FUMARATE [Concomitant]
     Indication: PRODUCT USED FOR UNKNOWN INDICATION
     Dates: start: 2008
  12. LITHIUM CARBONATE [Concomitant]
     Indication: PRODUCT USED FOR UNKNOWN INDICATION
     Dosage: LAST TAKEN ON 21 MAY 2013
     Dates: start: 20130227

REACTIONS (2)
  - Hip arthroplasty [Recovered/Resolved]
  - Muscle spasms [Recovered/Resolved]
